FAERS Safety Report 5770500-0 (Version None)
Quarter: 2008Q2

REPORT INFORMATION
  Report Type: 
  Country: None (occurrence: None)
  Receive Date: 20080613
  Receipt Date: 20080506
  Transmission Date: 20081010
  Serious: No
  Sender: FDA-Public Use
  Company Number: US-ABBOTT-08P-163-0450555-00

PATIENT
  Sex: Female
  Weight: 69.008 kg

DRUGS (8)
  1. HUMIRA [Suspect]
     Indication: RHEUMATOID ARTHRITIS
     Route: 058
     Dates: start: 20070701, end: 20080201
  2. LEVOTHYROXINE SODIUM [Concomitant]
     Indication: HORMONE REPLACEMENT THERAPY
     Route: 048
     Dates: start: 20050101
  3. ISRADIPINE [Concomitant]
     Indication: BLOOD PRESSURE
     Route: 048
  4. ATENOLOL [Concomitant]
     Indication: BLOOD PRESSURE
     Route: 048
  5. CLONIDINE [Concomitant]
     Indication: BLOOD PRESSURE
     Dosage: BREAKS OFF A LITTLE PIECE
     Route: 048
  6. CLONIDINE [Concomitant]
  7. CROMOLYN SODIUM [Concomitant]
     Indication: ASTHMA
     Route: 055
  8. PIRBUTEROL ACETATE [Concomitant]
     Indication: ASTHMA
     Route: 055

REACTIONS (3)
  - INFLUENZA [None]
  - INJECTION SITE BRUISING [None]
  - RHEUMATOID ARTHRITIS [None]
